FAERS Safety Report 9972832 (Version 1)
Quarter: 2014Q1

REPORT INFORMATION
  Report Type: Spontaneous
  Country: US (occurrence: US)
  Receive Date: 20140306
  Receipt Date: 20140306
  Transmission Date: 20141002
  Serious: Yes (Other)
  Sender: FDA-Public Use
  Company Number: US-BAYER-2014-029907

PATIENT
  Age: 59 Year
  Sex: Female

DRUGS (11)
  1. BAYER GENUINE ASPIRIN ORIGINAL STRENGTH [Suspect]
  2. TOPAMAX [Concomitant]
  3. ZOFRAN [Concomitant]
  4. PERCOCET [Concomitant]
  5. LYRICA [Concomitant]
  6. SYMMETREL [Concomitant]
  7. RESTORIL [Concomitant]
  8. SYNALAR [Concomitant]
  9. DRISDOL [Concomitant]
  10. ROCEPHIN [Concomitant]
  11. HYDROCODONE [Concomitant]

REACTIONS (1)
  - Anaphylactic reaction [None]
